FAERS Safety Report 5472066-1 (Version None)
Quarter: 2007Q3

REPORT INFORMATION
  Report Type: 
  Country: None (occurrence: None)
  Receive Date: 20070928
  Receipt Date: 20070919
  Transmission Date: 20080115
  Serious: Yes (Other)
  Sender: FDA-Public Use
  Company Number: NL-PFIZER INC-2007079297

PATIENT
  Sex: Male
  Weight: 87 kg

DRUGS (3)
  1. LIPITOR [Suspect]
     Indication: BLOOD CHOLESTEROL INCREASED
     Route: 048
     Dates: start: 19970101, end: 20070401
  2. DICLOFENAC [Concomitant]
  3. IBUPROFEN [Concomitant]

REACTIONS (2)
  - ARTHROPATHY [None]
  - MUSCLE DISORDER [None]
